FAERS Safety Report 6808029-0 (Version None)
Quarter: 2010Q2

REPORT INFORMATION
  Report Type: 
  Country: None (occurrence: None)
  Receive Date: 20100629
  Receipt Date: 20090702
  Transmission Date: 20101027
  Serious: Yes (Other)
  Sender: FDA-Public Use
  Company Number: US-PFIZER INC-2009188282

PATIENT
  Weight: 99.8 kg

DRUGS (3)
  1. VIAGRA [Suspect]
     Indication: ERECTILE DYSFUNCTION
     Dosage: 50 MG, AS NEEDED
     Dates: start: 20040101
  2. LIPITOR [Concomitant]
     Dosage: UNK
  3. VITAMINS [Concomitant]
     Dosage: UNK

REACTIONS (7)
  - ANXIETY [None]
  - BLOOD PRESSURE DECREASED [None]
  - DEAFNESS [None]
  - DRUG INEFFECTIVE [None]
  - NASAL CONGESTION [None]
  - VISUAL IMPAIRMENT [None]
  - WEIGHT DECREASED [None]
